FAERS Safety Report 24913113 (Version 7)
Quarter: 2025Q2

REPORT INFORMATION
  Report Type: Report from Study
  Country: CH (occurrence: CH)
  Receive Date: 20250201
  Receipt Date: 20250424
  Transmission Date: 20250717
  Serious: Yes (Hospitalization, Other)
  Sender: ABBVIE
  Company Number: CH-ABBVIE-6108905

PATIENT
  Age: 70 Year
  Sex: Female

DRUGS (5)
  1. CARBIDOPA\LEVODOPA [Suspect]
     Active Substance: CARBIDOPA\LEVODOPA
     Indication: Parkinson^s disease
     Route: 050
     Dates: start: 20190513
  2. CARBIDOPA\LEVODOPA [Suspect]
     Active Substance: CARBIDOPA\LEVODOPA
     Route: 050
     Dates: start: 20250102
  3. CARBIDOPA\LEVODOPA [Suspect]
     Active Substance: CARBIDOPA\LEVODOPA
     Route: 050
     Dates: start: 20250128
  4. STALEVO [Concomitant]
     Active Substance: CARBIDOPA\ENTACAPONE\LEVODOPA
     Indication: Product used for unknown indication
  5. NEUPRO [Concomitant]
     Active Substance: ROTIGOTINE
     Indication: Walking aid user

REACTIONS (18)
  - Spinal operation [Unknown]
  - Spinal stenosis [Not Recovered/Not Resolved]
  - Back pain [Recovered/Resolved]
  - Dyskinesia [Not Recovered/Not Resolved]
  - Dementia [Not Recovered/Not Resolved]
  - Device issue [Not Recovered/Not Resolved]
  - Walking aid user [Not Recovered/Not Resolved]
  - Asthenia [Not Recovered/Not Resolved]
  - Spondylitis [Not Recovered/Not Resolved]
  - Bradykinesia [Not Recovered/Not Resolved]
  - Musculoskeletal discomfort [Recovering/Resolving]
  - Loss of personal independence in daily activities [Not Recovered/Not Resolved]
  - Device kink [Unknown]
  - Mental disorder [Not Recovered/Not Resolved]
  - Cognitive disorder [Not Recovered/Not Resolved]
  - Parkinson^s disease [Not Recovered/Not Resolved]
  - General physical health deterioration [Not Recovered/Not Resolved]
  - Mental impairment [Not Recovered/Not Resolved]

NARRATIVE: CASE EVENT DATE: 20250101
